FAERS Safety Report 21053884 (Version 1)
Quarter: 2022Q3

REPORT INFORMATION
  Report Type: Spontaneous
  Country: US (occurrence: None)
  Receive Date: 20220707
  Receipt Date: 20220707
  Transmission Date: 20221027
  Serious: No
  Sender: FDA-Public Use
  Company Number: None

PATIENT
  Sex: Male

DRUGS (13)
  1. VIGABATRIN [Suspect]
     Active Substance: VIGABATRIN
     Indication: Krabbe^s disease
     Dosage: FREQUENCY : TWICE A DAY;?OTHER ROUTE : G-TUBE;?
     Route: 050
  2. EPIDIOLEX [Concomitant]
     Active Substance: CANNABIDIOL
  3. TOBRAMYCIN [Concomitant]
     Active Substance: TOBRAMYCIN
  4. CLOBAZAM [Concomitant]
     Active Substance: CLOBAZAM
  5. IPRATROPIUM BROMIDE [Concomitant]
     Active Substance: IPRATROPIUM BROMIDE
  6. SABRIL [Concomitant]
     Active Substance: VIGABATRIN
  7. BUDESONIDE [Concomitant]
     Active Substance: BUDESONIDE
  8. SODIUM CHLORIDE [Concomitant]
     Active Substance: SODIUM CHLORIDE
  9. GABAPENTIN [Concomitant]
     Active Substance: GABAPENTIN
  10. LACTULOSE [Concomitant]
     Active Substance: LACTULOSE
  11. GLYCOPYRROLATE [Concomitant]
     Active Substance: GLYCOPYRROLATE
  12. CLONAZEPAM [Concomitant]
     Active Substance: CLONAZEPAM
  13. VIMPAT [Concomitant]
     Active Substance: LACOSAMIDE

REACTIONS (1)
  - Seizure [None]
